FAERS Safety Report 8317348-0 (Version None)
Quarter: 2012Q2

REPORT INFORMATION
  Report Type: 
  Country: None (occurrence: None)
  Receive Date: 20120427
  Receipt Date: 20120416
  Transmission Date: 20120825
  Serious: Yes (Hospitalization)
  Sender: FDA-Public Use
  Company Number: US-JNJFOC-20120210903

PATIENT
  Sex: Male
  Weight: 100.7 kg

DRUGS (8)
  1. CYMBALTA [Concomitant]
     Route: 065
  2. REMICADE [Suspect]
     Indication: CROHN'S DISEASE
     Route: 042
  3. PREDNISONE [Suspect]
     Indication: CROHN'S DISEASE
     Route: 065
  4. ENALAPRIL MALEATE [Concomitant]
     Route: 065
  5. KLONOPIN [Concomitant]
     Route: 065
  6. MS CONTIN [Concomitant]
     Route: 065
  7. LORTAB [Concomitant]
     Dosage: DOSE:10/325 MG
     Route: 065
  8. PRILOSEC [Concomitant]
     Route: 065

REACTIONS (1)
  - STREPTOCOCCAL SEPSIS [None]
